FAERS Safety Report 9820448 (Version 1)
Quarter: 2013Q4

REPORT INFORMATION
  Report Type: Spontaneous
  Country: US (occurrence: None)
  Receive Date: 20131025
  Receipt Date: 20131025
  Transmission Date: 20140711
  Serious: No
  Sender: FDA-Public Use
  Company Number: AP356-00035-SPO-US

PATIENT
  Age: 62 Year
  Sex: Male
  Weight: 115 kg

DRUGS (3)
  1. BELVIQ (LORCASERIN HYDROCHLORIDE) [Suspect]
     Indication: WEIGHT DECREASED
     Dosage: 20 MG, 2 IN 1 D, ORAL
     Route: 048
     Dates: start: 20130624, end: 20130708
  2. LISINOPRIL (LISINOPRIL) [Concomitant]
  3. LOVASTATIN (LOVASTATIN) [Concomitant]

REACTIONS (1)
  - Dizziness [None]
